FAERS Safety Report 10302258 (Version 1)
Quarter: 2014Q3

REPORT INFORMATION
  Report Type: Report from Study
  Country: KR (occurrence: KR)
  Receive Date: 20140714
  Receipt Date: 20140714
  Transmission Date: 20150326
  Serious: Yes (Hospitalization)
  Sender: FDA-Public Use
  Company Number: KR-B.I. PHARMACEUTICALS,INC./RIDGEFIELD-2014-BI-31005RK

PATIENT
  Age: 76 Year
  Sex: Female
  Weight: 59 kg

DRUGS (20)
  1. COSOPT [Concomitant]
     Active Substance: DORZOLAMIDE HYDROCHLORIDE\TIMOLOL MALEATE
     Indication: ANGLE CLOSURE GLAUCOMA
     Dosage: 10 ML
     Route: 008
     Dates: start: 20120209
  2. DOXIUM [Concomitant]
     Indication: DIABETIC RETINOPATHY
     Dosage: 250 MG
     Route: 048
     Dates: start: 20070522
  3. GLUCOPHAGE [Concomitant]
     Active Substance: METFORMIN HYDROCHLORIDE
     Indication: DIABETES MELLITUS
     Dosage: 500 MG
     Route: 048
     Dates: start: 20050728
  4. BRVIX [Concomitant]
     Indication: BRAIN STEM INFARCTION
     Dosage: 75 MG
     Route: 048
     Dates: start: 20111027
  5. PARACAINE [Concomitant]
     Active Substance: PROPARACAINE HYDROCHLORIDE
     Indication: ANGLE CLOSURE GLAUCOMA
     Dosage: 0.8 ML
     Route: 008
     Dates: start: 20120209
  6. TWYNSTA [Suspect]
     Active Substance: AMLODIPINE BESYLATE\TELMISARTAN
     Indication: HYPERTENSION
     Dosage: DOSE PER APPLICATION AND DAILY DOSE: 40MG+5MG
     Route: 048
     Dates: start: 20110503
  7. ALPHAGAN P [Concomitant]
     Active Substance: BRIMONIDINE TARTRATE
     Indication: ANGLE CLOSURE GLAUCOMA
     Dosage: 10 ML
     Route: 008
     Dates: start: 20120209
  8. STALEVO [Concomitant]
     Active Substance: CARBIDOPA\ENTACAPONE\LEVODOPA
     Indication: PARKINSON^S DISEASE
     Dosage: 125 MG
     Route: 048
     Dates: start: 20110810
  9. EXELON [Concomitant]
     Active Substance: RIVASTIGMINE TARTRATE
     Indication: PARKINSON^S DISEASE
     Dosage: 1.5 MG
     Route: 048
     Dates: start: 20110810
  10. CRAVIT [Concomitant]
     Active Substance: LEVOFLOXACIN
     Indication: ANGLE CLOSURE GLAUCOMA
     Dosage: 20 ML
     Route: 008
     Dates: start: 20120224
  11. VOLTAREN SDU [Concomitant]
     Indication: ANGLE CLOSURE GLAUCOMA
     Dosage: 3.6 ML
     Route: 008
     Dates: start: 20120224
  12. SEROQUEL [Concomitant]
     Active Substance: QUETIAPINE FUMARATE
     Indication: PARKINSON^S DISEASE
     Dosage: 12.5 MG
     Route: 048
     Dates: start: 20110810
  13. NEUROPACID [Concomitant]
     Indication: DIABETES MELLITUS
     Dosage: 600 MG
     Route: 048
     Dates: start: 20070118
  14. LEVODA [Concomitant]
     Indication: PARKINSON^S DISEASE
     Dosage: 200 MG
     Route: 048
     Dates: start: 20110810
  15. MIRAPEX [Concomitant]
     Active Substance: PRAMIPEXOLE DIHYDROCHLORIDE
     Indication: PARKINSON^S DISEASE
     Dosage: 0.375 MG
     Route: 048
     Dates: start: 20110810
  16. QRETIN [Concomitant]
     Indication: DIABETIC RETINOPATHY
     Dosage: 170 MG
     Route: 048
     Dates: start: 20100526
  17. AMARYL [Concomitant]
     Active Substance: GLIMEPIRIDE
     Indication: DIABETES MELLITUS
     Dosage: 16 MG
     Route: 048
     Dates: start: 20080610
  18. MOMTILIUM-M [Concomitant]
     Indication: GASTRITIS PROPHYLAXIS
     Dosage: 20 MG
     Route: 048
     Dates: start: 20110810
  19. GLUCOBAY [Concomitant]
     Active Substance: ACARBOSE
     Indication: DIABETES MELLITUS
     Dosage: 100 MG
     Route: 048
     Dates: start: 20060807
  20. VITAMEDIN [Concomitant]
     Active Substance: CYANOCOBALAMIN\PYRIDOXINE HYDROCHLORIDE\THIAMINE
     Indication: DIABETIC RETINOPATHY
     Dosage: 25 MG
     Route: 048
     Dates: start: 20050421

REACTIONS (1)
  - Cataract [Recovered/Resolved]

NARRATIVE: CASE EVENT DATE: 20120326
